FAERS Safety Report 8909462 (Version 1)
Quarter: 2012Q4

REPORT INFORMATION
  Report Type: Spontaneous
  Country: GB (occurrence: None)
  Receive Date: 20121109
  Receipt Date: 20121109
  Transmission Date: 20130627
  Serious: Yes (Hospitalization, Other)
  Sender: FDA-Public Use
  Company Number: 2012MA013001

PATIENT
  Age: 43 Year
  Sex: Female

DRUGS (2)
  1. ALPRAZOLAM [Suspect]
     Indication: OVERDOSE
  2. METHADONE [Suspect]
     Indication: OVERDOSE

REACTIONS (17)
  - Pneumonia aspiration [None]
  - Renal tubular necrosis [None]
  - Hepatic failure [None]
  - Overdose [None]
  - Psychomotor retardation [None]
  - Apathy [None]
  - Sluggishness [None]
  - Disorientation [None]
  - Electroencephalogram abnormal [None]
  - Nuclear magnetic resonance imaging brain abnormal [None]
  - Memory impairment [None]
  - Executive dysfunction [None]
  - Lack of spontaneous speech [None]
  - Ataxia [None]
  - Urinary incontinence [None]
  - Tremor [None]
  - Leukoencephalopathy [None]
